FAERS Safety Report 19925784 (Version 1)
Quarter: 2021Q4

REPORT INFORMATION
  Report Type: Spontaneous
  Country: GB (occurrence: GB)
  Receive Date: 20211007
  Receipt Date: 20211007
  Transmission Date: 20220303
  Serious: Yes (Hospitalization, Other)
  Sender: FDA-Public Use
  Company Number: GB-MHRA-EYC 00259580

PATIENT
  Age: 35 Year
  Sex: Female
  Weight: 55 kg

DRUGS (4)
  1. ACETAMINOPHEN [Suspect]
     Active Substance: ACETAMINOPHEN
     Indication: Ill-defined disorder
     Dosage: ESTIMATED BETWEEN 20 - 40 TABLETS
     Route: 048
     Dates: start: 20210827, end: 20210831
  2. ACETAMINOPHEN [Suspect]
     Active Substance: ACETAMINOPHEN
     Dosage: ESTIMATED BETWEEN 20 - 40 TABLETS
     Route: 048
     Dates: start: 20210828, end: 20210831
  3. PANTOPRAZOLE [Concomitant]
     Active Substance: PANTOPRAZOLE
     Indication: Ill-defined disorder
     Dosage: UNK
     Route: 065
  4. VENLAFAXINE [Concomitant]
     Active Substance: VENLAFAXINE HYDROCHLORIDE
     Indication: Ill-defined disorder
     Dosage: UNK
     Route: 065

REACTIONS (6)
  - Coagulopathy [Unknown]
  - Hepatic enzyme increased [Recovering/Resolving]
  - Hypoglycaemia [Unknown]
  - Liver function test increased [Unknown]
  - Metabolic acidosis [Unknown]
  - Overdose [Unknown]

NARRATIVE: CASE EVENT DATE: 20210827
